FAERS Safety Report 14676688 (Version 2)
Quarter: 2021Q4

REPORT INFORMATION
  Report Type: Other
  Country: HU (occurrence: HU)
  Receive Date: 20180324
  Receipt Date: 20211222
  Transmission Date: 20220303
  Serious: Yes (Other)
  Sender: FDA-Public Use
  Company Number: HU-IPSEN BIOPHARMACEUTICALS, INC.-2018-02604

PATIENT
  Age: 70 Year
  Sex: Male

DRUGS (7)
  1. CAPECITABINE [Suspect]
     Active Substance: CAPECITABINE
     Indication: Product used for unknown indication
     Route: 065
  2. IRINOTECAN [Suspect]
     Active Substance: IRINOTECAN
     Indication: Carcinoid tumour of the caecum
     Dosage: NOT REPORTED
     Route: 065
  3. IRINOTECAN [Suspect]
     Active Substance: IRINOTECAN
     Indication: Off label use
     Route: 065
  4. FLUOROURACIL [Suspect]
     Active Substance: FLUOROURACIL
     Indication: Carcinoid tumour of the caecum
     Route: 065
  5. LEUCOVORIN [Suspect]
     Active Substance: LEUCOVORIN
     Indication: Carcinoid tumour of the caecum
     Route: 065
  6. VECTIBIX [Suspect]
     Active Substance: PANITUMUMAB
     Indication: Carcinoid tumour of the caecum
     Route: 065
  7. OXALIPLATIN [Suspect]
     Active Substance: OXALIPLATIN
     Indication: Product used for unknown indication
     Route: 065

REACTIONS (1)
  - Skin reaction [Unknown]
